FAERS Safety Report 9366811 (Version 1)
Quarter: 2013Q2

REPORT INFORMATION
  Report Type: Spontaneous
  Country: FR (occurrence: FR)
  Receive Date: 20130625
  Receipt Date: 20130625
  Transmission Date: 20140414
  Serious: Yes (Other)
  Sender: FDA-Public Use
  Company Number: FR-TEVA-415052ISR

PATIENT
  Sex: Male
  Weight: 100 kg

DRUGS (2)
  1. FUROSEMIDE TEVA [Suspect]
     Dosage: 40 MILLIGRAM DAILY;
     Route: 048
     Dates: end: 201305
  2. FUROSEMIDE TEVA [Suspect]
     Dosage: 80 MILLIGRAM DAILY;
     Route: 048
     Dates: start: 201305, end: 201306

REACTIONS (3)
  - Impaired driving ability [Unknown]
  - Somnolence [Unknown]
  - Local swelling [Unknown]
